FAERS Safety Report 19099801 (Version 2)
Quarter: 2021Q2

REPORT INFORMATION
  Report Type: Other
  Country: CZ (occurrence: CZ)
  Receive Date: 20210406
  Receipt Date: 20210414
  Transmission Date: 20210717
  Serious: Yes (Death, Other)
  Sender: FDA-Public Use
  Company Number: CZ-CELLTRION INC.-2021CZ004406

PATIENT

DRUGS (4)
  1. RITUXIMAB (UNKNOWN) [Suspect]
     Active Substance: RITUXIMAB
     Indication: DIFFUSE LARGE B-CELL LYMPHOMA
     Dosage: CYCLE 1 NEXT DOSES WERE RECEIVED ON 21/JAN/2020 (CYCLE 2), 12/FEB/2020 (CYCLE 3), 04/MAR/2020 (CYCLE
     Route: 042
     Dates: start: 20191223, end: 20200518
  2. POLATUZUMAB VEDOTIN. [Suspect]
     Active Substance: POLATUZUMAB VEDOTIN
     Indication: DIFFUSE LARGE B-CELL LYMPHOMA
     Dosage: UNK
  3. BENDAMUSTINE [Suspect]
     Active Substance: BENDAMUSTINE
     Indication: DIFFUSE LARGE B-CELL LYMPHOMA
     Dosage: CYCLE 1 NEXT DOSES WERE RECEIVED ON 21/JAN/2020 (CYCLE 2), 12/FEB/2020 (CYCLE 3), 04/MAR/2020 (CYCLE
     Route: 042
     Dates: start: 20191223, end: 20200518
  4. POLATUZUMAB VEDOTIN. [Suspect]
     Active Substance: POLATUZUMAB VEDOTIN
     Dosage: CYCLE 1 NEXT DOSES WERE RECEIVED ON 21/JAN/2020 (CYCLE 2), 12/FEB/2020 (CYCLE 3), 04/MAR/2020 (CYCLE
     Route: 042
     Dates: start: 20191223, end: 20200518

REACTIONS (3)
  - Cytopenia [Unknown]
  - Myelosuppression [Unknown]
  - Death [Fatal]

NARRATIVE: CASE EVENT DATE: 20200121
